FAERS Safety Report 4868066-2 (Version None)
Quarter: 2005Q4

REPORT INFORMATION
  Report Type: 
  Country: None (occurrence: None)
  Receive Date: 20051229
  Receipt Date: 20051019
  Transmission Date: 20060501
  Serious: Yes (Other)
  Sender: FDA-Public Use
  Company Number: IT-ABBOTT-05P-083-0314664-00

PATIENT
  Age: 22 Year
  Sex: Male

DRUGS (6)
  1. DEPAKENE [Suspect]
     Indication: EPILEPSY
     Route: 048
     Dates: start: 20050701, end: 20051019
  2. DEPAKENE [Suspect]
  3. DEPAKENE [Suspect]
     Indication: EPILEPSY
     Dates: start: 20000101, end: 20050701
  4. DEPAKENE [Suspect]
     Dates: start: 20051020
  5. SULPIRIDE [Concomitant]
     Indication: DRUG USE FOR UNKNOWN INDICATION
     Route: 048
  6. ALPRAZOLAM [Concomitant]
     Indication: INSOMNIA
     Route: 048

REACTIONS (2)
  - ABNORMAL BEHAVIOUR [None]
  - MANIA [None]
